FAERS Safety Report 18310676 (Version 1)
Quarter: 2020Q3

REPORT INFORMATION
  Report Type: Spontaneous
  Country: US (occurrence: US)
  Receive Date: 20200924
  Receipt Date: 20200924
  Transmission Date: 20201103
  Serious: No
  Sender: FDA-Public Use
  Company Number: US-BAXTER-2020BAX019530

PATIENT

DRUGS (1)
  1. FLUCONAZOLE INJECTION,USP (IN 0.9% SODIUM CHLORIDE INJECTION) [Suspect]
     Active Substance: FLUCONAZOLE
     Indication: PRODUCT USED FOR UNKNOWN INDICATION
     Dosage: FLUCONAZOLE SODIUM CHLORIDE INJECTION 0.2 %, 100 ML
     Route: 065

REACTIONS (1)
  - Drug ineffective [Unknown]
